FAERS Safety Report 7134292-5 (Version None)
Quarter: 2010Q4

REPORT INFORMATION
  Report Type: 
  Country: None (occurrence: None)
  Receive Date: 20101203
  Receipt Date: 20101122
  Transmission Date: 20110411
  Serious: Yes (Hospitalization)
  Sender: FDA-Public Use
  Company Number: US-AMGEN-USASP2010005439

PATIENT

DRUGS (2)
  1. ENBREL [Suspect]
     Indication: PSORIASIS
     Dosage: 25 MG, 2 TIMES/WK
     Dates: start: 20040201, end: 20041101
  2. ENBREL [Suspect]
     Indication: PSORIATIC ARTHROPATHY
     Dosage: 50 MG, 2 TIMES/WK

REACTIONS (11)
  - BLOOD URINE PRESENT [None]
  - BRONCHITIS [None]
  - CHILLS [None]
  - INFECTION [None]
  - INFLUENZA LIKE ILLNESS [None]
  - PNEUMONIA PRIMARY ATYPICAL [None]
  - PSORIASIS [None]
  - PSORIATIC ARTHROPATHY [None]
  - SINUS DISORDER [None]
  - SINUSITIS [None]
  - TRANSIENT ISCHAEMIC ATTACK [None]
